FAERS Safety Report 6649999-3 (Version None)
Quarter: 2010Q1

REPORT INFORMATION
  Report Type: 
  Country: None (occurrence: None)
  Receive Date: 20100324
  Receipt Date: 20100324
  Transmission Date: 20100710
  Serious: Yes (Hospitalization)
  Sender: FDA-Public Use
  Company Number: None

PATIENT
  Age: 66 Year
  Sex: Female
  Weight: 61.2356 kg

DRUGS (1)
  1. MANNITOL [Suspect]
     Indication: BLOOD PRESSURE
     Dosage: 1X DAY ORAL
     Route: 048
     Dates: start: 20091219, end: 20100215

REACTIONS (2)
  - ABDOMINAL DISCOMFORT [None]
  - DIVERTICULITIS [None]
